FAERS Safety Report 24086938 (Version 1)
Quarter: 2024Q3

REPORT INFORMATION
  Report Type: Spontaneous
  Country: US (occurrence: US)
  Receive Date: 20240713
  Receipt Date: 20240713
  Transmission Date: 20241017
  Serious: No
  Sender: JOHNSON AND JOHNSON
  Company Number: US-JNJFOC-20240669962

PATIENT
  Sex: Female

DRUGS (1)
  1. IMODIUM MULTI-SYMPTOM RELIEF [Suspect]
     Active Substance: DIMETHICONE\LOPERAMIDE HYDROCHLORIDE
     Indication: Diarrhoea
     Dosage: ONE CAPLET EACH TIME. TWICE A DAY WHEN NEEDED.
     Route: 048

REACTIONS (4)
  - Incorrect dose administered [Unknown]
  - Therapeutic response unexpected [Unknown]
  - Incorrect product administration duration [Unknown]
  - Product packaging issue [Unknown]
